FAERS Safety Report 8541582-8 (Version None)
Quarter: 2012Q3

REPORT INFORMATION
  Report Type: 
  Country: None (occurrence: None)
  Receive Date: 20120726
  Receipt Date: 20120718
  Transmission Date: 20120928
  Serious: Yes (Other)
  Sender: FDA-Public Use
  Company Number: JP-ROCHE-1091513

PATIENT
  Sex: Female
  Weight: 1.312 kg

DRUGS (6)
  1. MUCOSTA [Concomitant]
     Route: 064
     Dates: start: 20110101
  2. ACTEMRA [Suspect]
     Indication: JUVENILE ARTHRITIS
     Route: 064
     Dates: start: 20110101, end: 20110716
  3. ONEALFA [Concomitant]
     Dosage: FORM POR
     Route: 064
  4. PREDNISOLONE [Concomitant]
     Indication: JUVENILE ARTHRITIS
     Route: 064
     Dates: start: 20110101
  5. ACTEMRA [Suspect]
     Route: 064
     Dates: start: 20110806, end: 20110903
  6. EBASTINE [Concomitant]
     Indication: PROPHYLAXIS
     Dosage: THIS MEDICINE PREINITIATION ADMINISTERING
     Route: 064
     Dates: start: 20110101, end: 20110903

REACTIONS (2)
  - MATERNAL EXPOSURE TIMING UNSPECIFIED [None]
  - PREMATURE BABY [None]
